FAERS Safety Report 11103825 (Version 1)
Quarter: 2015Q2

REPORT INFORMATION
  Report Type: Report from Study
  Country: US (occurrence: US)
  Receive Date: 20150511
  Receipt Date: 20150511
  Transmission Date: 20150821
  Serious: Yes (Other)
  Sender: FDA-Public Use
  Company Number: US-SA-2015SA062134

PATIENT
  Age: 51 Year
  Sex: Female

DRUGS (1)
  1. LANTUS [Suspect]
     Active Substance: INSULIN GLARGINE
     Indication: DIABETES MELLITUS
     Dosage: DOSE AND DAILY DOSE: 86 (UNITS UNSPECIFIED) QD
     Route: 065
     Dates: start: 20150503

REACTIONS (1)
  - Post concussion syndrome [Not Recovered/Not Resolved]

NARRATIVE: CASE EVENT DATE: 201505
